FAERS Safety Report 20737270 (Version 1)
Quarter: 2022Q2

REPORT INFORMATION
  Report Type: Spontaneous
  Country: US (occurrence: US)
  Receive Date: 20220421
  Receipt Date: 20220421
  Transmission Date: 20220721
  Serious: Yes (Other)
  Sender: FDA-Public Use
  Company Number: US-NOVARTISPH-NVSC2022US086747

PATIENT
  Age: 15 Year
  Sex: Male

DRUGS (6)
  1. MYCOPHENOLIC ACID [Suspect]
     Active Substance: MYCOPHENOLIC ACID
     Indication: Heart transplant
     Dosage: UNK
     Route: 065
  2. MYCOPHENOLIC ACID [Suspect]
     Active Substance: MYCOPHENOLIC ACID
     Indication: Immunosuppressant drug therapy
  3. TACROLIMUS [Suspect]
     Active Substance: TACROLIMUS
     Indication: Heart transplant
     Dosage: UNK
     Route: 065
  4. TACROLIMUS [Suspect]
     Active Substance: TACROLIMUS
     Indication: Immunosuppressant drug therapy
  5. THYMOCYTE IMMUNE GLOBULIN NOS [Concomitant]
     Active Substance: THYMOCYTE IMMUNE GLOBULIN NOS
     Indication: Heart transplant
     Dosage: UNK
     Route: 065
  6. ERTAPENEM [Concomitant]
     Active Substance: ERTAPENEM
     Indication: Osteomyelitis
     Dosage: UNK
     Route: 065

REACTIONS (4)
  - High-grade B-cell lymphoma [Unknown]
  - Heart transplant rejection [Unknown]
  - Product use issue [Unknown]
  - Product use in unapproved indication [Unknown]
